FAERS Safety Report 5249254-2 (Version None)
Quarter: 2007Q1

REPORT INFORMATION
  Report Type: 
  Country: None (occurrence: None)
  Receive Date: 20070228
  Receipt Date: 20070216
  Transmission Date: 20070707
  Serious: Yes (Hospitalization)
  Sender: FDA-Public Use
  Company Number: JP-ROCHE-483160

PATIENT
  Age: 66 Year
  Sex: Male

DRUGS (4)
  1. LUPRAC [Suspect]
     Route: 048
     Dates: start: 20030215
  2. PIRETANIDE [Concomitant]
     Indication: OEDEMA
     Dates: end: 20020615
  3. CHEMOTHERAPY NOS [Concomitant]
  4. FUROSEMIDE [Concomitant]
     Dates: start: 20030215

REACTIONS (1)
  - VITAMIN B1 DEFICIENCY [None]
